FAERS Safety Report 6900924-7 (Version None)
Quarter: 2010Q3

REPORT INFORMATION
  Report Type: 
  Country: None (occurrence: None)
  Receive Date: 20100803
  Receipt Date: 20100727
  Transmission Date: 20110219
  Serious: Yes (Hospitalization)
  Sender: FDA-Public Use
  Company Number: A0873471A

PATIENT
  Age: 56 Year
  Sex: Female

DRUGS (2)
  1. AVANDIA [Suspect]
     Dosage: 4MG TWICE PER DAY
     Route: 048
     Dates: start: 20051129, end: 20061222
  2. AVANDAMET [Suspect]
     Route: 048
     Dates: start: 20031218, end: 20070829

REACTIONS (4)
  - CARDIAC DISORDER [None]
  - CORONARY ARTERY BYPASS [None]
  - DEPRESSION [None]
  - STENT PLACEMENT [None]
